FAERS Safety Report 13718199 (Version 1)
Quarter: 2017Q3

REPORT INFORMATION
  Report Type: Spontaneous
  Country: US (occurrence: US)
  Receive Date: 20170705
  Receipt Date: 20170705
  Transmission Date: 20171127
  Serious: Yes (Other)
  Sender: FDA-Public Use
  Company Number: US-MYLANLABS-2017M1039525

PATIENT

DRUGS (2)
  1. ASPIRIN                            /00002701/ [Suspect]
     Active Substance: ASPIRIN
     Indication: TAKAYASU^S ARTERITIS
     Dosage: 81 MG, QD
     Route: 065
  2. PREDNISONE. [Suspect]
     Active Substance: PREDNISONE
     Indication: TAKAYASU^S ARTERITIS
     Route: 065

REACTIONS (4)
  - Normal newborn [Unknown]
  - Maternal exposure during pregnancy [Unknown]
  - Gestational diabetes [Unknown]
  - Pre-eclampsia [Unknown]
